FAERS Safety Report 8907491 (Version 1)
Quarter: 2012Q4

REPORT INFORMATION
  Report Type: 
  Country: US (occurrence: US)
  Receive Date: 20121114
  Receipt Date: 20121114
  Transmission Date: 20130627
  Serious: Yes (Other)
  Sender: FDA-Public Use
  Company Number: US-PFIZER INC-2012280904

PATIENT
  Age: 83 Year
  Sex: Female
  Weight: 77.1 kg

DRUGS (11)
  1. XALATAN [Suspect]
     Indication: GLAUCOMA
     Dosage: UNK 1x/day, one drop in each eye
  2. LIPITOR [Concomitant]
     Dosage: UNK
  3. CELEBREX [Concomitant]
     Dosage: UNK
  4. NORVASC [Concomitant]
     Dosage: UNK
  5. PLAVIX [Concomitant]
     Dosage: UNK
  6. PAXIL CR [Concomitant]
     Dosage: UNK
  7. RANITIDINE [Concomitant]
     Dosage: UNK
  8. HYDROCHLOROTHIAZIDE [Concomitant]
     Dosage: UNK
  9. HYDROCODONE [Concomitant]
     Dosage: UNK
  10. FLOVENT [Concomitant]
     Dosage: UNK
  11. VENTOLIN [Concomitant]
     Dosage: UNK

REACTIONS (2)
  - Macular degeneration [Unknown]
  - Spinal disorder [Unknown]
